FAERS Safety Report 7067463-7 (Version None)
Quarter: 2010Q4

REPORT INFORMATION
  Report Type: 
  Country: None (occurrence: None)
  Receive Date: 20101028
  Receipt Date: 20101015
  Transmission Date: 20110411
  Serious: Yes (Other)
  Sender: FDA-Public Use
  Company Number: DE-ELI_LILLY_AND_COMPANY-DE201010003685

PATIENT
  Sex: Female

DRUGS (4)
  1. FORTEO [Suspect]
     Dosage: UNK, UNKNOWN
     Route: 058
     Dates: start: 20100607
  2. INSULIN [Concomitant]
     Dosage: UNK, UNKNOWN
     Route: 065
  3. CALCIUM [Concomitant]
     Dosage: UNK, UNKNOWN
     Route: 065
  4. VIGANTOL [Concomitant]
     Dosage: 10 DROPS UNKNOWN
     Route: 065

REACTIONS (3)
  - HYPERSENSITIVITY [None]
  - INJECTION SITE PRURITUS [None]
  - PARALYSIS [None]
